FAERS Safety Report 9604064 (Version 1)
Quarter: 2013Q4

REPORT INFORMATION
  Report Type: Spontaneous
  Country: PH (occurrence: PH)
  Receive Date: 20131008
  Receipt Date: 20131008
  Transmission Date: 20140711
  Serious: Yes (Death)
  Sender: FDA-Public Use
  Company Number: PH-MERCK-1310PHL002167

PATIENT
  Sex: Female

DRUGS (1)
  1. HYZAAR [Suspect]
     Dosage: 1 TABLET, QD; DAILY DOSE: 50/12.5 MG
     Route: 048

REACTIONS (1)
  - Death [Fatal]
